FAERS Safety Report 11212323 (Version 2)
Quarter: 2015Q3

REPORT INFORMATION
  Report Type: Spontaneous
  Country: AT (occurrence: AT)
  Receive Date: 20150623
  Receipt Date: 20150821
  Transmission Date: 20151125
  Serious: Yes (Other)
  Sender: FDA-Public Use
  Company Number: AT-009507513-1506AUT009633

PATIENT
  Sex: Female

DRUGS (14)
  1. MIRTAZAPINE. [Suspect]
     Active Substance: MIRTAZAPINE
     Indication: DEPRESSION
     Dosage: 15 MG, UNK
     Route: 048
     Dates: start: 20150427, end: 20150427
  2. SEROQUEL [Suspect]
     Active Substance: QUETIAPINE FUMARATE
     Indication: DEPRESSION
     Dosage: 250 MG, UNK
     Route: 048
     Dates: start: 20150411, end: 20150507
  3. QUILONORM-RETARD [Concomitant]
     Dosage: 900 MG, UNK
     Dates: start: 20150416, end: 20150419
  4. LAMICTAL [Concomitant]
     Active Substance: LAMOTRIGINE
     Dosage: 50 MG, UNK
     Dates: start: 20150411, end: 20150413
  5. TOLVON [Concomitant]
     Active Substance: MIANSERIN
     Dosage: 30 MG, UNK
     Dates: start: 20150504
  6. EFECTIN [Concomitant]
     Active Substance: VENLAFAXINE HYDROCHLORIDE
     Indication: DEPRESSION
     Dosage: 300 MG, UNK
     Route: 048
     Dates: start: 20150412
  7. QUILONORM-RETARD [Concomitant]
     Dosage: 1350 MG, UNK
     Dates: start: 20150420, end: 20150422
  8. MIRTAZAPINE. [Suspect]
     Active Substance: MIRTAZAPINE
     Indication: DEPRESSION
     Dosage: 30 MG, UNK
     Route: 048
     Dates: start: 20150427, end: 20150504
  9. SEROQUEL [Suspect]
     Active Substance: QUETIAPINE FUMARATE
     Dosage: 300 MG, UNK
     Dates: start: 20150528, end: 20150528
  10. LAMICTAL [Concomitant]
     Active Substance: LAMOTRIGINE
     Dosage: 75 MG, UNK
     Dates: start: 20150414, end: 20150420
  11. QUILONORM-RETARD [Concomitant]
     Dosage: 450 MG, UNK
     Dates: start: 20150411, end: 20150415
  12. SEROQUEL [Suspect]
     Active Substance: QUETIAPINE FUMARATE
     Dosage: 200 MG, UNK
     Dates: start: 20150508, end: 20150527
  13. LAMICTAL [Concomitant]
     Active Substance: LAMOTRIGINE
     Dosage: 100 MG, UNK
     Route: 048
     Dates: start: 20150421, end: 20150505
  14. QUILONORM-RETARD [Concomitant]
     Dosage: 675 MG, UNK
     Route: 048
     Dates: start: 20150423

REACTIONS (1)
  - Restless legs syndrome [Recovered/Resolved]

NARRATIVE: CASE EVENT DATE: 20150430
